FAERS Safety Report 16429167 (Version 2)
Quarter: 2019Q3

REPORT INFORMATION
  Report Type: Spontaneous
  Country: US (occurrence: US)
  Receive Date: 20190614
  Receipt Date: 20190729
  Transmission Date: 20191004
  Serious: No
  Sender: FDA-Public Use
  Company Number: US-JNJFOC-20190541336

PATIENT
  Weight: 140 kg

DRUGS (2)
  1. CLOBETASOL [Concomitant]
     Active Substance: CLOBETASOL
  2. STELARA [Suspect]
     Active Substance: USTEKINUMAB
     Indication: PSORIASIS
     Route: 030

REACTIONS (6)
  - Palpitations [Recovered/Resolved]
  - Off label use [Unknown]
  - Headache [Unknown]
  - Incorrect route of product administration [Unknown]
  - Muscle fatigue [Recovered/Resolved]
  - Fatigue [Unknown]
